FAERS Safety Report 6986321-7 (Version None)
Quarter: 2010Q3

REPORT INFORMATION
  Report Type: 
  Country: None (occurrence: None)
  Receive Date: 20100915
  Receipt Date: 20090624
  Transmission Date: 20110219
  Serious: No
  Sender: FDA-Public Use
  Company Number: US-WYE-H09912409

PATIENT
  Sex: Female
  Weight: 47.67 kg

DRUGS (8)
  1. PRISTIQ [Suspect]
     Indication: DEPRESSION
     Route: 048
     Dates: start: 20090620
  2. MOBIC [Concomitant]
  3. METAMUCIL-2 [Concomitant]
  4. TRAZODONE HCL [Concomitant]
  5. ACETYLSALICYLIC ACID [Concomitant]
  6. DARVOCET-N 100 [Concomitant]
  7. PREVACID [Concomitant]
  8. LOPRESSOR [Concomitant]

REACTIONS (8)
  - CONDITION AGGRAVATED [None]
  - CONSTIPATION [None]
  - DRY MOUTH [None]
  - INITIAL INSOMNIA [None]
  - INTENTIONAL DRUG MISUSE [None]
  - MUSCULAR WEAKNESS [None]
  - SLEEP DISORDER [None]
  - WRONG TECHNIQUE IN DRUG USAGE PROCESS [None]
